FAERS Safety Report 6816741-2 (Version None)
Quarter: 2010Q3

REPORT INFORMATION
  Report Type: 
  Country: None (occurrence: None)
  Receive Date: 20100706
  Receipt Date: 20100623
  Transmission Date: 20110219
  Serious: Yes (Other)
  Sender: FDA-Public Use
  Company Number: PHHY2010JP41364

PATIENT
  Age: 50 Year
  Sex: Male

DRUGS (1)
  1. RASILEZ [Suspect]
     Indication: HYPERTENSION
     Dosage: UNK
     Route: 048
     Dates: start: 20100618, end: 20100623

REACTIONS (3)
  - BLOOD CREATININE INCREASED [None]
  - DISCOMFORT [None]
  - HYPOTENSION [None]
